FAERS Safety Report 15148345 (Version 4)
Quarter: 2018Q4

REPORT INFORMATION
  Report Type: Spontaneous
  Country: US (occurrence: US)
  Receive Date: 20180716
  Receipt Date: 20181129
  Transmission Date: 20190204
  Serious: Yes (Other)
  Sender: FDA-Public Use
  Company Number: US-PFIZER INC-2018284082

PATIENT
  Age: 72 Year
  Sex: Female

DRUGS (1)
  1. PREMARIN [Suspect]
     Active Substance: ESTROGENS, CONJUGATED
     Dosage: 0.625 MG, UNK

REACTIONS (7)
  - Bronchitis [Recovered/Resolved]
  - Rectal cancer [Recovered/Resolved]
  - Myocardial infarction [Unknown]
  - Body height decreased [Unknown]
  - Colon cancer [Recovered/Resolved]
  - Arthropathy [Unknown]
  - Tremor [Unknown]

NARRATIVE: CASE EVENT DATE: 2010
